FAERS Safety Report 10216933 (Version 1)
Quarter: 2014Q2

REPORT INFORMATION
  Report Type: Spontaneous
  Country: US (occurrence: US)
  Receive Date: 20140604
  Receipt Date: 20140604
  Transmission Date: 20141212
  Serious: No
  Sender: FDA-Public Use
  Company Number: US-BAYER-2014-082255

PATIENT
  Sex: Female

DRUGS (1)
  1. AVELOX [Suspect]

REACTIONS (1)
  - Drug hypersensitivity [None]
